FAERS Safety Report 20171383 (Version 1)
Quarter: 2021Q4

REPORT INFORMATION
  Report Type: Spontaneous
  Country: IT (occurrence: None)
  Receive Date: 20211209
  Receipt Date: 20211209
  Transmission Date: 20220303
  Serious: No
  Sender: FDA-Public Use
  Company Number: None

PATIENT
  Age: 29 Year
  Sex: Female

DRUGS (1)
  1. OMNIPAQUE [Suspect]
     Active Substance: IOHEXOL
     Route: 042
     Dates: start: 20211027

REACTIONS (4)
  - Nausea [None]
  - Eye swelling [None]
  - Vomiting [None]
  - Contrast media reaction [None]

NARRATIVE: CASE EVENT DATE: 20211027
